FAERS Safety Report 10384548 (Version 2)
Quarter: 2014Q3

REPORT INFORMATION
  Report Type: Spontaneous
  Country: US (occurrence: US)
  Receive Date: 20140814
  Receipt Date: 20140814
  Transmission Date: 20150326
  Serious: Yes (Hospitalization, Disabling)
  Sender: FDA-Public Use
  Company Number: US-009507513-2010SP028233

PATIENT
  Sex: Female
  Weight: 57.61 kg

DRUGS (8)
  1. CYMBALTA [Suspect]
     Active Substance: DULOXETINE HYDROCHLORIDE
     Indication: ANXIETY
     Dosage: 60 MG, QD
     Route: 048
     Dates: start: 200807
  2. NORVASC [Suspect]
     Active Substance: AMLODIPINE BESYLATE
     Indication: HYPERTENSION
     Dosage: 10 MG, QD
     Route: 048
     Dates: start: 20080511, end: 200809
  3. CYMBALTA [Suspect]
     Active Substance: DULOXETINE HYDROCHLORIDE
     Indication: MAJOR DEPRESSION
     Dosage: 60 MG, BID
     Route: 048
  4. ALLEGRA [Concomitant]
     Active Substance: FEXOFENADINE HYDROCHLORIDE
     Indication: HYPERSENSITIVITY
     Dosage: 60 MG, BID
     Dates: start: 2003
  5. NUVARING [Suspect]
     Active Substance: ETHINYL ESTRADIOL\ETONOGESTREL
     Indication: MENSTRUAL CYCLE MANAGEMENT
  6. RHINOCORT [Concomitant]
     Active Substance: BUDESONIDE
     Indication: HYPERSENSITIVITY
     Dosage: UNK UNK, QD
     Route: 045
     Dates: start: 2003
  7. NUVARING [Suspect]
     Active Substance: ETHINYL ESTRADIOL\ETONOGESTREL
     Indication: CONTRACEPTION
     Route: 067
     Dates: start: 20061217, end: 20080503
  8. MINERALS (UNSPECIFIED) (+) VITAMINS (UNSPECIFIED) [Concomitant]
     Indication: IRON DEFICIENCY
     Dosage: 1 MG, QD
     Dates: start: 2003

REACTIONS (16)
  - Diarrhoea [Unknown]
  - Tremor [Unknown]
  - Hypertension [Unknown]
  - Haemorrhage intracranial [Recovered/Resolved with Sequelae]
  - Anxiety [Unknown]
  - Off label use [Unknown]
  - Intracranial aneurysm [Recovered/Resolved with Sequelae]
  - Scar [Unknown]
  - Coital bleeding [Recovered/Resolved]
  - Excessive skin [Unknown]
  - Depression [Not Recovered/Not Resolved]
  - Metrorrhagia [Unknown]
  - Dyspareunia [Recovered/Resolved]
  - Hyperglycaemia [Recovering/Resolving]
  - Hernia [Unknown]
  - Insomnia [Not Recovered/Not Resolved]

NARRATIVE: CASE EVENT DATE: 2006
